FAERS Safety Report 9093906 (Version 1)
Quarter: 2013Q1

REPORT INFORMATION
  Report Type: Spontaneous
  Country: AR (occurrence: AR)
  Receive Date: 20130201
  Receipt Date: 20130201
  Transmission Date: 20140127
  Serious: Yes (Death)
  Sender: FDA-Public Use
  Company Number: AR-AMGEN-ARGSP2013006663

PATIENT
  Age: 88 Year
  Sex: Male

DRUGS (5)
  1. ENBREL [Suspect]
     Indication: RHEUMATOID ARTHRITIS
     Dosage: 50 MG, WEEKLY
     Route: 058
     Dates: start: 20060710, end: 201209
  2. T4 [Concomitant]
     Dosage: UNK
  3. LANZOPRAL [Concomitant]
     Dosage: UNK
  4. METICORTEN [Concomitant]
     Dosage: UNK
  5. ERYTHROPOIETIN [Concomitant]
     Dosage: UNK

REACTIONS (1)
  - Aortic aneurysm [Fatal]
